FAERS Safety Report 10775532 (Version 3)
Quarter: 2015Q2

REPORT INFORMATION
  Report Type: Report from Study
  Country: US (occurrence: US)
  Receive Date: 20150209
  Receipt Date: 20150623
  Transmission Date: 20150821
  Serious: Yes (Hospitalization, Other)
  Sender: FDA-Public Use
  Company Number: US-BEH-2015048410

PATIENT
  Age: 55 Year
  Sex: Female

DRUGS (6)
  1. PREDNISONE. [Concomitant]
     Active Substance: PREDNISONE
  2. HIZENTRA [Suspect]
     Active Substance: HUMAN IMMUNOGLOBULIN G
     Dosage: 06-FEB-2015 TO 25-FEB-2015 DOSING PERIOD; 10 GM/50 ML WEEKLY
  3. HIZENTRA [Suspect]
     Active Substance: HUMAN IMMUNOGLOBULIN G
     Indication: IMMUNODEFICIENCY COMMON VARIABLE
     Dates: start: 20150122
  4. TYLENOL [Concomitant]
     Active Substance: ACETAMINOPHEN
  5. HIZENTRA [Suspect]
     Active Substance: HUMAN IMMUNOGLOBULIN G
     Dosage: DOSING PERIOD: 06-MAR-2015-27-MAR-2015; 10G/50 ML WEEKLY
  6. HIZENTRA [Suspect]
     Active Substance: HUMAN IMMUNOGLOBULIN G
     Dosage: DOSING PERIOD 02-APR-2-015 TO 24-APR-2015(EXPECTED); 10GM,/50 ML  WEEKLY

REACTIONS (27)
  - Amnesia [Unknown]
  - Pain [Unknown]
  - Headache [Unknown]
  - Nasopharyngitis [Not Recovered/Not Resolved]
  - Pain in extremity [Not Recovered/Not Resolved]
  - Asthenia [Not Recovered/Not Resolved]
  - Fatigue [Not Recovered/Not Resolved]
  - Vision blurred [Not Recovered/Not Resolved]
  - Agitation [Not Recovered/Not Resolved]
  - Administration site erythema [Not Recovered/Not Resolved]
  - Nausea [Not Recovered/Not Resolved]
  - Muscle spasms [Not Recovered/Not Resolved]
  - Administration site haemorrhage [Not Recovered/Not Resolved]
  - Anxiety [Not Recovered/Not Resolved]
  - Retching [Not Recovered/Not Resolved]
  - Cough [Not Recovered/Not Resolved]
  - Administration site pain [Not Recovered/Not Resolved]
  - Chills [Not Recovered/Not Resolved]
  - Depression [Not Recovered/Not Resolved]
  - Administration site swelling [Not Recovered/Not Resolved]
  - Epistaxis [Not Recovered/Not Resolved]
  - Somnolence [Not Recovered/Not Resolved]
  - Respiratory tract haemorrhage [Not Recovered/Not Resolved]
  - Paraesthesia [Not Recovered/Not Resolved]
  - Abdominal pain upper [Not Recovered/Not Resolved]
  - Diarrhoea [Not Recovered/Not Resolved]
  - Administration site bruise [Not Recovered/Not Resolved]

NARRATIVE: CASE EVENT DATE: 20150123
